FAERS Safety Report 10572595 (Version 6)
Quarter: 2015Q1

REPORT INFORMATION
  Report Type: Spontaneous
  Country: JP (occurrence: None)
  Receive Date: 20141106
  Receipt Date: 20150219
  Transmission Date: 20150720
  Serious: Yes (Death, Other)
  Sender: FDA-Public Use
  Company Number: ADR-2014-02037

PATIENT
  Age: 66 Year
  Sex: Female
  Weight: 37 kg

DRUGS (1)
  1. GABALON [Suspect]
     Active Substance: BACLOFEN
     Indication: MULTIPLE SYSTEM ATROPHY
     Dosage: ^370MCG/DAY^; SEE B5, THERAPY DATES: 11/01/2013-TERMINATED AT
     Dates: start: 20131101

REACTIONS (5)
  - Choking [None]
  - Cardiac failure [None]
  - Cardio-respiratory arrest [None]
  - Secretion discharge [None]
  - Aspiration [None]

NARRATIVE: CASE EVENT DATE: 20141026
